FAERS Safety Report 6137977-2 (Version None)
Quarter: 2009Q1

REPORT INFORMATION
  Report Type: 
  Country: None (occurrence: None)
  Receive Date: 20090327
  Receipt Date: 20090327
  Transmission Date: 20090719
  Serious: Yes (Death, Other)
  Sender: FDA-Public Use
  Company Number: None

PATIENT
  Age: 71 Year
  Sex: Male
  Weight: 77.1115 kg

DRUGS (7)
  1. ZOLOFT [Suspect]
     Indication: DEPRESSION
     Dosage: 1/2 OF 50 MG 1 PER DAY
     Dates: start: 19950101
  2. GEMFIBROZIL [Suspect]
     Indication: BLOOD CHOLESTEROL
     Dosage: 600 MG 2 PER DAY
     Dates: start: 20020101
  3. ASPIRIN [Concomitant]
  4. LISINOPRIL [Concomitant]
  5. LANOXIN [Concomitant]
  6. VERAPAMIL [Concomitant]
  7. ZOCOR [Concomitant]

REACTIONS (2)
  - COMPLETED SUICIDE [None]
  - GUN SHOT WOUND [None]
